FAERS Safety Report 10245292 (Version 1)
Quarter: 2014Q2

REPORT INFORMATION
  Report Type: Spontaneous
  Country: AU (occurrence: AU)
  Receive Date: 20140618
  Receipt Date: 20140618
  Transmission Date: 20141212
  Serious: Yes (Other)
  Sender: FDA-Public Use
  Company Number: AU-PFIZER INC-2014163304

PATIENT
  Age: 54 Year
  Sex: Female

DRUGS (6)
  1. ATORVASTATIN CALCIUM [Suspect]
     Dosage: 20 MG, DAILY
     Route: 048
  2. QUININE [Interacting]
     Dosage: UNK
  3. AMLODIPINE [Concomitant]
     Dosage: 5 MG, DAILY
  4. ATENOLOL [Concomitant]
     Dosage: 50 MG, DAILY
  5. ASPIRIN [Concomitant]
     Dosage: 100 MG, DAILY
  6. GLUCOSAMINE [Concomitant]
     Dosage: 750 MG, 2X/DAY

REACTIONS (3)
  - Renal failure acute [Unknown]
  - Rhabdomyolysis [Unknown]
  - Drug interaction [Unknown]
